FAERS Safety Report 8176837-2 (Version None)
Quarter: 2012Q1

REPORT INFORMATION
  Report Type: 
  Country: None (occurrence: None)
  Receive Date: 20120228
  Receipt Date: 20120217
  Transmission Date: 20120608
  Serious: Yes (Hospitalization, Disabling)
  Sender: FDA-Public Use
  Company Number: 1200417

PATIENT
  Age: 51 Year
  Sex: Female
  Weight: 29.9374 kg

DRUGS (20)
  1. MIDODRINE HYDROCHLORIDE [Concomitant]
  2. PREGABALIN [Concomitant]
  3. LANSOPRAZOLE [Concomitant]
  4. METOCLOPRAMIDE [Concomitant]
  5. (VITAMIN B COMPOUND /00212701/) [Concomitant]
  6. (ELLESTE DUCT) [Concomitant]
  7. FLUDROCORTISONE ACETATE [Concomitant]
  8. ITRACONAZOLE [Concomitant]
  9. CYTARABINE [Suspect]
     Indication: ACUTE MYELOID LEUKAEMIA
     Dosage: SEE IMAGE
     Route: 042
     Dates: start: 20111109, end: 20111109
  10. CYTARABINE [Suspect]
     Indication: ACUTE MYELOID LEUKAEMIA
     Dosage: SEE IMAGE
     Route: 042
     Dates: start: 20111229, end: 20111229
  11. ACYCLOVIR [Concomitant]
  12. GABAPENTIN [Concomitant]
  13. DAUNORUBICIN HCL [Concomitant]
  14. ACETAMINOPHEN [Concomitant]
  15. (ZOPLICONE) [Concomitant]
  16. ALLOPURINOL [Concomitant]
  17. ONDANSETRON [Concomitant]
  18. (SANDO K /00031402/) [Concomitant]
  19. LORAZEPAM [Concomitant]
  20. THIAMINE HCL [Concomitant]

REACTIONS (3)
  - MYALGIA [None]
  - PARAESTHESIA [None]
  - NEUROPATHY PERIPHERAL [None]
